FAERS Safety Report 9444627 (Version 2)
Quarter: 2013Q3

REPORT INFORMATION
  Report Type: Report from Study
  Country: CA (occurrence: CA)
  Receive Date: 20130807
  Receipt Date: 20130930
  Transmission Date: 20140515
  Serious: Yes (Other)
  Sender: FDA-Public Use
  Company Number: CA-UCBSA-093661

PATIENT
  Age: 60 Year
  Sex: Female
  Weight: 100 kg

DRUGS (13)
  1. CIMZIA [Suspect]
     Indication: RHEUMATOID ARTHRITIS
     Route: 058
     Dates: start: 20100204, end: 20100304
  2. CIMZIA [Suspect]
     Indication: RHEUMATOID ARTHRITIS
     Route: 058
     Dates: start: 20100418
  3. FOLIC ACID [Concomitant]
     Indication: SUPPLEMENTATION THERAPY
     Route: 048
     Dates: start: 200906
  4. CODEINE [Concomitant]
     Indication: ANALGESIC THERAPY
     Dosage: ONCE DAILY
     Route: 048
  5. POTASSIUM [Concomitant]
     Indication: SUPPLEMENTATION THERAPY
     Route: 048
  6. PLAQUENIL [Concomitant]
     Indication: RHEUMATOID ARTHRITIS
     Route: 048
     Dates: start: 1992
  7. PREDNISONE [Concomitant]
     Indication: RHEUMATOID ARTHRITIS
     Route: 048
     Dates: start: 1992
  8. PREVACID [Concomitant]
     Indication: GASTRIC DISORDER
     Route: 048
  9. HCTZ [Concomitant]
     Indication: HYPERTENSION
     Route: 048
  10. NORVASC [Concomitant]
     Indication: HYPERTENSION
     Route: 048
  11. WARFARIN [Concomitant]
     Dosage: VARIABLE DOSE INTAKE
     Route: 048
  12. MICROFLOX [Concomitant]
     Indication: URINARY TRACT INFECTION
     Dates: start: 201307, end: 20130715
  13. MICROFLOX [Concomitant]
     Indication: URINARY TRACT INFECTION
     Dates: start: 201307, end: 20130715

REACTIONS (3)
  - Urinary tract infection [Recovering/Resolving]
  - Blood potassium decreased [Recovered/Resolved]
  - Nausea [Not Recovered/Not Resolved]
